FAERS Safety Report 21138930 (Version 5)
Quarter: 2022Q4

REPORT INFORMATION
  Report Type: Spontaneous
  Country: JP (occurrence: JP)
  Receive Date: 20220727
  Receipt Date: 20221221
  Transmission Date: 20230113
  Serious: Yes (Other)
  Sender: FDA-Public Use
  Company Number: JP-JNJJAKJPN-202045125

PATIENT
  Sex: Male

DRUGS (10)
  1. TRAMCET [Suspect]
     Active Substance: ACETAMINOPHEN\TRAMADOL
     Indication: Pain
     Dosage: 2 TABLETS IN THE MORNING, 2 TABLETS IN THE EVENING
     Route: 048
  2. TRAMCET [Suspect]
     Active Substance: ACETAMINOPHEN\TRAMADOL
     Dosage: 2 TABLETS IN THE MORNING, 1 TABLETS IN THE EVENING
     Route: 048
     Dates: start: 20200815
  3. TRAMCET [Suspect]
     Active Substance: ACETAMINOPHEN\TRAMADOL
     Dosage: 2 TABLETS IN THE MORNING, 2 TABLETS IN THE EVENING
     Route: 048
  4. TRAMCET [Suspect]
     Active Substance: ACETAMINOPHEN\TRAMADOL
     Dosage: 2 TABLETS IN THE MORNING, 1 TABLET IN THE AFTERNOON, 2 TABLETS IN THE EVENING
     Route: 048
  5. TRAMCET [Suspect]
     Active Substance: ACETAMINOPHEN\TRAMADOL
     Dosage: 2 TABLETS IN THE MORNING, 1 TABLET IN THE AFTERNOON, 1 TABLET IN THE EVENING, 1 TABLET AT BEDTIME
     Route: 048
  6. TRAMCET [Suspect]
     Active Substance: ACETAMINOPHEN\TRAMADOL
     Route: 048
  7. TRAMCET [Suspect]
     Active Substance: ACETAMINOPHEN\TRAMADOL
     Route: 048
     Dates: end: 20221012
  8. TRAMCET [Suspect]
     Active Substance: ACETAMINOPHEN\TRAMADOL
     Route: 048
     Dates: start: 20221013
  9. TRAMCET [Suspect]
     Active Substance: ACETAMINOPHEN\TRAMADOL
     Route: 048
     Dates: start: 2022
  10. LOXOPROFEN SODIUM [Concomitant]
     Active Substance: LOXOPROFEN SODIUM
     Dosage: DOSE UNKNOWN, P.R.N
     Route: 048

REACTIONS (13)
  - Renal impairment [Unknown]
  - Somnolence [Unknown]
  - Insomnia [Unknown]
  - Abdominal discomfort [Recovering/Resolving]
  - Nervousness [Unknown]
  - Dysphonia [Unknown]
  - Depressive symptom [Unknown]
  - Nausea [Unknown]
  - Malaise [Unknown]
  - Euphoric mood [Unknown]
  - Overdose [Unknown]
  - Off label use [Unknown]
  - Inadequate analgesia [Unknown]

NARRATIVE: CASE EVENT DATE: 20200826
